FAERS Safety Report 6051486-0 (Version None)
Quarter: 2009Q1

REPORT INFORMATION
  Report Type: 
  Country: None (occurrence: None)
  Receive Date: 20090126
  Receipt Date: 20090116
  Transmission Date: 20090719
  Serious: Yes (Hospitalization)
  Sender: FDA-Public Use
  Company Number: A0764573A

PATIENT
  Sex: Male
  Weight: 113.6 kg

DRUGS (1)
  1. AVANDAMET [Suspect]
     Indication: HYPERTENSION
     Route: 048
     Dates: start: 19980101, end: 20000101

REACTIONS (6)
  - ASTHENIA [None]
  - CARDIAC DISORDER [None]
  - CHEST PAIN [None]
  - MYALGIA [None]
  - VISION BLURRED [None]
  - WEIGHT INCREASED [None]
